FAERS Safety Report 6019039-8 (Version None)
Quarter: 2008Q4

REPORT INFORMATION
  Report Type: 
  Country: None (occurrence: None)
  Receive Date: 20081224
  Receipt Date: 20081215
  Transmission Date: 20090506
  Serious: Yes (Other)
  Sender: FDA-Public Use
  Company Number: US-PFIZER INC-2008088540

PATIENT
  Sex: Female
  Weight: 95.692 kg

DRUGS (12)
  1. LYRICA [Suspect]
     Indication: FIBROMYALGIA
     Dosage: 25 MG, 2X/DAY
     Dates: start: 20080501, end: 20081019
  2. VALPROIC ACID [Concomitant]
  3. PROPOXYPHENE HYDROCHLORIDE [Concomitant]
  4. LEVOTHYROXINE SODIUM [Concomitant]
  5. PAXIL [Concomitant]
  6. ACIPHEX [Concomitant]
  7. ACETYLSALICYLIC ACID [Concomitant]
  8. MULTI-VITAMINS [Concomitant]
  9. NYQUIL [Concomitant]
  10. VITAMIN B COMPLEX CAP [Concomitant]
  11. DIPROLENE [Concomitant]
  12. LIDODERM [Concomitant]

REACTIONS (3)
  - ARTHRITIS [None]
  - PAIN [None]
  - TRIGGER FINGER [None]
